FAERS Safety Report 21972530 (Version 1)
Quarter: 2023Q1

REPORT INFORMATION
  Report Type: Spontaneous
  Country: US (occurrence: None)
  Receive Date: 20230208
  Receipt Date: 20230208
  Transmission Date: 20230417
  Serious: No
  Sender: FDA-Public Use
  Company Number: None

PATIENT
  Age: 34 Year
  Sex: Male
  Weight: 75 kg

DRUGS (1)
  1. TECVAYLI [Suspect]
     Active Substance: TECLISTAMAB-CQYV
     Dosage: 30 MG STEP UP-2 DAYS AFT SUBCUTANEOUS?
     Route: 058
     Dates: start: 20170201

REACTIONS (1)
  - Infection [None]

NARRATIVE: CASE EVENT DATE: 20230104
